FAERS Safety Report 13574411 (Version 2)
Quarter: 2017Q2

REPORT INFORMATION
  Report Type: Spontaneous
  Country: NL (occurrence: NL)
  Receive Date: 20170523
  Receipt Date: 20170527
  Transmission Date: 20170830
  Serious: Yes (Other)
  Sender: FDA-Public Use
  Company Number: NL-TEVA-769062ACC

PATIENT
  Sex: Female

DRUGS (3)
  1. LOSARTAN TABLET FO 100MG [Concomitant]
     Indication: HYPERTENSION
     Dosage: DOSAGE NOT COMPLETED
     Route: 048
  2. HYDROCHLOROTHIAZIDE TABLET 12,5MG [Suspect]
     Active Substance: HYDROCHLOROTHIAZIDE
     Indication: HYPERTENSION
     Dosage: DOSAGE NOT COMPLETED
     Route: 048
     Dates: end: 201702
  3. METOPROLOL TABLET   50MG [Concomitant]
     Indication: HYPERTENSION
     Dosage: DOSAGE NOT COMPLETED
     Route: 048

REACTIONS (1)
  - Nephropathy [Recovering/Resolving]
